FAERS Safety Report 5404364-1 (Version None)
Quarter: 2007Q3

REPORT INFORMATION
  Report Type: 
  Country: None (occurrence: None)
  Receive Date: 20070802
  Receipt Date: 20070725
  Transmission Date: 20080115
  Serious: Yes (Other)
  Sender: FDA-Public Use
  Company Number: CH-ASTRAZENECA-2005PK00711

PATIENT
  Age: 62 Year
  Sex: Female
  Weight: 60 kg

DRUGS (6)
  1. SEROQUEL [Interacting]
     Indication: DEPRESSION
     Route: 048
     Dates: start: 20031215
  2. LITHIUM CARBONATE [Suspect]
     Indication: DEPRESSION
     Route: 048
     Dates: start: 20030201, end: 20050302
  3. EFFEXOR [Interacting]
     Indication: DEPRESSION
     Route: 048
     Dates: start: 20021001
  4. NEBILET [Concomitant]
     Dates: start: 20040101
  5. EUTHYROX [Concomitant]
     Route: 048
     Dates: start: 20040101
  6. ESTRACOMB [Concomitant]
     Dosage: MANY YEARS

REACTIONS (10)
  - COORDINATION ABNORMAL [None]
  - DRUG INTERACTION [None]
  - DRUG LEVEL INCREASED [None]
  - ELECTROENCEPHALOGRAM ABNORMAL [None]
  - ENCEPHALOPATHY [None]
  - GAIT DISTURBANCE [None]
  - MENTAL DISORDER [None]
  - MUSCLE TWITCHING [None]
  - SOMNOLENCE [None]
  - TREMOR [None]
